FAERS Safety Report 23965515 (Version 1)
Quarter: 2024Q2

REPORT INFORMATION
  Report Type: Other
  Country: PL (occurrence: PL)
  Receive Date: 20240612
  Receipt Date: 20240612
  Transmission Date: 20240716
  Serious: Yes (Life-Threatening, Other)
  Sender: FDA-Public Use
  Company Number: PL-IBSA PHARMA INC.-2024IBS000268

PATIENT
  Age: 16 Year
  Sex: Female
  Weight: 45 kg

DRUGS (3)
  1. LEVOTHYROXINE SODIUM [Suspect]
     Active Substance: LEVOTHYROXINE SODIUM
     Indication: Suicide attempt
     Dosage: UNK
     Route: 048
     Dates: start: 20240525, end: 20240525
  2. OPIPRAMOL [Suspect]
     Active Substance: OPIPRAMOL
     Indication: Suicide attempt
     Dosage: 5.3 GRAM
     Route: 048
     Dates: start: 20240525, end: 20240525
  3. PAROXETINE [Suspect]
     Active Substance: PAROXETINE
     Indication: Suicide attempt
     Dosage: 1 GRAM
     Route: 048
     Dates: start: 20240525, end: 20240525

REACTIONS (2)
  - Suicide attempt [Recovering/Resolving]
  - Toxicity to various agents [Recovering/Resolving]

NARRATIVE: CASE EVENT DATE: 20240525
